FAERS Safety Report 12787305 (Version 1)
Quarter: 2016Q3

REPORT INFORMATION
  Report Type: Report from Study
  Country: CA (occurrence: CA)
  Receive Date: 20160928
  Receipt Date: 20160928
  Transmission Date: 20161109
  Serious: Yes (Hospitalization, Other)
  Sender: FDA-Public Use
  Company Number: CA-BEH-2016073774

PATIENT
  Sex: Female

DRUGS (4)
  1. HIZENTRA [Suspect]
     Active Substance: HUMAN IMMUNOGLOBULIN G
     Indication: PRIMARY IMMUNODEFICIENCY SYNDROME
     Dosage: UNK UNK, QW
     Route: 058
     Dates: start: 2010
  2. DILAUDID [Concomitant]
     Active Substance: HYDROMORPHONE HYDROCHLORIDE
     Dosage: UNK, PRN
     Route: 065
  3. CODEINE [Concomitant]
     Active Substance: CODEINE
     Route: 065
  4. LYRICA [Concomitant]
     Active Substance: PREGABALIN
     Route: 065

REACTIONS (3)
  - Rash [Recovered/Resolved]
  - Lung infection [Unknown]
  - Skin discolouration [Unknown]

NARRATIVE: CASE EVENT DATE: 2016
